FAERS Safety Report 5820380-X (Version None)
Quarter: 2008Q3

REPORT INFORMATION
  Report Type: 
  Country: None (occurrence: None)
  Receive Date: 20080724
  Receipt Date: 20070709
  Transmission Date: 20090109
  Serious: No
  Sender: FDA-Public Use
  Company Number: A0658943A

PATIENT
  Age: 67 Year
  Sex: Female

DRUGS (3)
  1. AVANDIA [Suspect]
     Dosage: 8MG PER DAY
     Route: 048
     Dates: start: 20070425, end: 20070427
  2. ADVAIR DISKUS 100/50 [Concomitant]
  3. CLONIDINE [Concomitant]

REACTIONS (7)
  - ABDOMINAL DISTENSION [None]
  - ABDOMINAL PAIN [None]
  - ABDOMINAL PAIN UPPER [None]
  - CHROMATURIA [None]
  - DYSPNOEA [None]
  - MICTURITION DISORDER [None]
  - VISUAL ACUITY REDUCED [None]
